FAERS Safety Report 6278368-3 (Version None)
Quarter: 2009Q3

REPORT INFORMATION
  Report Type: 
  Country: None (occurrence: None)
  Receive Date: 20090722
  Receipt Date: 20090710
  Transmission Date: 20100115
  Serious: Yes (Other)
  Sender: FDA-Public Use
  Company Number: GB-PFIZER INC-2009238723

PATIENT
  Age: 53 Year

DRUGS (8)
  1. CHAMPIX [Suspect]
     Indication: SMOKING CESSATION THERAPY
     Dosage: 1 G, 1X/DAY
     Route: 048
     Dates: start: 20090610, end: 20090629
  2. ACETYLSALICYLIC ACID [Concomitant]
     Dosage: 75 MG, 1X/DAY
  3. BISOPROLOL [Concomitant]
     Dosage: 2.5 MG, 1X/DAY
  4. OMEPRAZOLE [Concomitant]
     Dosage: 40 MG, 1X/DAY
  5. RAMIPRIL [Concomitant]
     Dosage: 10 MG, 1X/DAY
  6. SIMVASTATIN [Concomitant]
     Dosage: 40 MG, 1X/DAY
  7. THIAMINE [Concomitant]
     Dosage: 100 MG, 1X/DAY
  8. VITAMIN B COMPLEX CAP [Concomitant]
     Dosage: 2 DF, 1X/DAY

REACTIONS (2)
  - PAIN [None]
  - PARAESTHESIA [None]
